FAERS Safety Report 14780267 (Version 1)
Quarter: 2018Q2

REPORT INFORMATION
  Report Type: Spontaneous
  Country: BR (occurrence: BR)
  Receive Date: 20180419
  Receipt Date: 20180419
  Transmission Date: 20180711
  Serious: Yes (Hospitalization, Other)
  Sender: FDA-Public Use
  Company Number: BR-ELI_LILLY_AND_COMPANY-BR201802010665

PATIENT
  Sex: Female

DRUGS (2)
  1. HUMULIN NOS [Suspect]
     Active Substance: INSULIN HUMAN
     Indication: DIABETES MELLITUS
     Dosage: UNK, UNKNOWN
     Route: 065
     Dates: start: 2003
  2. INSULIN HUMAN [Suspect]
     Active Substance: INSULIN HUMAN
     Indication: DIABETES MELLITUS
     Dosage: UNK, UNKNOWN
     Route: 065

REACTIONS (14)
  - Fall [Unknown]
  - Visual acuity reduced [Unknown]
  - Intervertebral disc protrusion [Unknown]
  - Gait disturbance [Unknown]
  - Joint injury [Recovered/Resolved]
  - Blood glucose increased [Unknown]
  - Spinal fracture [Unknown]
  - Drug dose omission [Unknown]
  - Localised infection [Recovered/Resolved]
  - Spinal pain [Unknown]
  - Injection site bruising [Unknown]
  - Fall [Unknown]
  - Varicose vein [Unknown]
  - Drug ineffective [Unknown]

NARRATIVE: CASE EVENT DATE: 2010
